FAERS Safety Report 5402101-8 (Version None)
Quarter: 2007Q3

REPORT INFORMATION
  Report Type: 
  Country: None (occurrence: None)
  Receive Date: 20070801
  Receipt Date: 20070720
  Transmission Date: 20080115
  Serious: Yes (Other)
  Sender: FDA-Public Use
  Company Number: US-JNJFOC-20070705022

PATIENT
  Sex: Female
  Weight: 79.38 kg

DRUGS (8)
  1. REMICADE [Suspect]
     Indication: CROHN'S DISEASE
     Route: 042
  2. COLAZAL [Concomitant]
     Indication: CROHN'S DISEASE
  3. PEPCID [Concomitant]
  4. VYTORIN [Concomitant]
  5. CLONAZEPAM [Concomitant]
  6. FLEXERIL [Concomitant]
     Indication: MUSCLE RELAXANT THERAPY
  7. BUSPAR [Concomitant]
     Indication: ANXIETY
  8. PERCOCET [Concomitant]
     Indication: PAIN

REACTIONS (3)
  - BASAL CELL CARCINOMA [None]
  - CROHN'S DISEASE [None]
  - PRECANCEROUS SKIN LESION [None]
